FAERS Safety Report 5943969-6 (Version None)
Quarter: 2008Q4

REPORT INFORMATION
  Report Type: 
  Country: None (occurrence: None)
  Receive Date: 20081106
  Receipt Date: 20081105
  Transmission Date: 20090506
  Serious: Yes (Death)
  Sender: FDA-Public Use
  Company Number: GB-WYE-G02388708

PATIENT
  Sex: Male
  Weight: 100 kg

DRUGS (5)
  1. DEXTROMETHORPHAN HYDROBROMIDE [Suspect]
     Indication: COUGH
     Dosage: UNKNOWN
     Route: 048
  2. ETHANOL [Concomitant]
     Dosage: UNKNOWN
  3. OPIOIDS [Concomitant]
     Dosage: UNKNOWN
  4. ERYTHROMYCIN [Concomitant]
     Indication: LOWER RESPIRATORY TRACT INFECTION
     Dosage: UNKNOWN
     Route: 048
  5. COCAINE [Concomitant]
     Dosage: UNKNOWN

REACTIONS (2)
  - ACCIDENTAL OVERDOSE [None]
  - RESPIRATORY FAILURE [None]
